FAERS Safety Report 12562014 (Version 1)
Quarter: 2016Q3

REPORT INFORMATION
  Report Type: Spontaneous
  Country: US (occurrence: US)
  Receive Date: 20160715
  Receipt Date: 20160715
  Transmission Date: 20161109
  Serious: No
  Sender: FDA-Public Use
  Company Number: US-BEH-2016070797

PATIENT
  Age: 66 Year
  Sex: Female
  Weight: 79.37 kg

DRUGS (32)
  1. HIZENTRA [Suspect]
     Active Substance: HUMAN IMMUNOGLOBULIN G
     Indication: IMMUNODEFICIENCY COMMON VARIABLE
     Dosage: 12 G, QW
     Route: 058
  2. VITAMIN D                          /00107901/ [Concomitant]
     Active Substance: ERGOCALCIFEROL
  3. CALCIUM [Concomitant]
     Active Substance: CALCIUM
  4. MUCINEX [Concomitant]
     Active Substance: GUAIFENESIN
  5. POTASSIUM GLUCONATE [Concomitant]
     Active Substance: POTASSIUM GLUCONATE
  6. PROTONIX [Concomitant]
     Active Substance: PANTOPRAZOLE SODIUM
  7. RESTASIS [Concomitant]
     Active Substance: CYCLOSPORINE
  8. ADVAIR HFA [Concomitant]
     Active Substance: FLUTICASONE PROPIONATE\SALMETEROL XINAFOATE
  9. SPIRIVA [Concomitant]
     Active Substance: TIOTROPIUM BROMIDE MONOHYDRATE
  10. DUONEB [Concomitant]
     Active Substance: ALBUTEROL SULFATE\IPRATROPIUM BROMIDE
  11. LMX                                /00033401/ [Concomitant]
  12. CHONDROITIN GLUCOSAMINE [Concomitant]
  13. LUTEIN                             /01638501/ [Concomitant]
     Active Substance: LUTEIN
  14. ACETAMINOPHEN. [Concomitant]
     Active Substance: ACETAMINOPHEN
  15. PLAQUENIL                          /00072602/ [Concomitant]
     Active Substance: HYDROXYCHLOROQUINE DIPHOSPHATE
  16. SYNTHROID [Concomitant]
     Active Substance: LEVOTHYROXINE SODIUM
  17. ASPIRIN. [Concomitant]
     Active Substance: ASPIRIN
  18. ACIDOPHILUS [Concomitant]
     Active Substance: LACTOBACILLUS ACIDOPHILUS
  19. CLONAZEPAM. [Concomitant]
     Active Substance: CLONAZEPAM
  20. REMERON [Concomitant]
     Active Substance: MIRTAZAPINE
  21. PROLIA [Concomitant]
     Active Substance: DENOSUMAB
  22. LEXAPRO [Concomitant]
     Active Substance: ESCITALOPRAM OXALATE
  23. EPIPEN [Concomitant]
     Active Substance: EPINEPHRINE
  24. RANITIDINE. [Concomitant]
     Active Substance: RANITIDINE
  25. DEXILANT [Concomitant]
     Active Substance: DEXLANSOPRAZOLE
  26. COZAAR [Concomitant]
     Active Substance: LOSARTAN POTASSIUM
  27. FLONASE [Concomitant]
     Active Substance: FLUTICASONE PROPIONATE
  28. WELLBUTRIN [Concomitant]
     Active Substance: BUPROPION HYDROCHLORIDE
  29. DIPHENHYDRAMINE. [Concomitant]
     Active Substance: DIPHENHYDRAMINE
  30. SINGULAIR [Concomitant]
     Active Substance: MONTELUKAST SODIUM
  31. OMEGA-3                            /01866101/ [Concomitant]
     Active Substance: OMEGA-3 FATTY ACIDS
  32. ABILIFY [Concomitant]
     Active Substance: ARIPIPRAZOLE

REACTIONS (1)
  - Urinary tract infection [Unknown]

NARRATIVE: CASE EVENT DATE: 20160401
